FAERS Safety Report 11052959 (Version 1)
Quarter: 2015Q2

REPORT INFORMATION
  Report Type: Spontaneous
  Country: FR (occurrence: FR)
  Receive Date: 20150421
  Receipt Date: 20150421
  Transmission Date: 20150821
  Serious: Yes (Death, Life-Threatening)
  Sender: FDA-Public Use
  Company Number: FR-ASTRAZENECA-2015SE35496

PATIENT
  Sex: Female

DRUGS (20)
  1. SECTRAL [Concomitant]
     Active Substance: ACEBUTOLOL HYDROCHLORIDE
  2. ROVALCYTE [Suspect]
     Active Substance: VALGANCICLOVIR HYDROCHLORIDE
     Route: 048
     Dates: start: 20150220, end: 20150220
  3. INEXIUM [Suspect]
     Active Substance: ESOMEPRAZOLE
     Indication: PROPHYLAXIS AGAINST GASTROINTESTINAL ULCER
     Route: 048
     Dates: start: 20150216, end: 20150221
  4. CORDARONE [Suspect]
     Active Substance: AMIODARONE HYDROCHLORIDE
     Indication: ATRIAL FIBRILLATION
     Route: 048
     Dates: start: 20150220, end: 20150220
  5. LASILIX SPECIAL [Suspect]
     Active Substance: FUROSEMIDE
     Indication: CHRONIC KIDNEY DISEASE
     Route: 048
     Dates: start: 20150220, end: 20150221
  6. FUROSEMIDE RENAUDIN [Suspect]
     Active Substance: FUROSEMIDE
     Indication: CHRONIC KIDNEY DISEASE
     Route: 042
     Dates: start: 20150218, end: 20150221
  7. LOXEN [Concomitant]
     Active Substance: NICARDIPINE HYDROCHLORIDE
  8. BACTRIM [Suspect]
     Active Substance: SULFAMETHOXAZOLE\TRIMETHOPRIM
     Route: 048
     Dates: start: 20150218, end: 20150220
  9. ATG-FRESENIUS [Suspect]
     Active Substance: LAPINE T-LYMPHOCYTE IMMUNE GLOBULIN
     Indication: PROPHYLAXIS AGAINST TRANSPLANT REJECTION
     Route: 048
     Dates: start: 20150215, end: 20150219
  10. TRIATEC [Concomitant]
     Active Substance: RAMIPRIL
  11. ACEBUTOLOL ARROW [Suspect]
     Active Substance: ACEBUTOLOL
     Indication: HYPERTENSION
     Route: 048
     Dates: start: 20150220, end: 20150220
  12. CORTANCYL [Suspect]
     Active Substance: PREDNISONE
     Indication: PROPHYLAXIS AGAINST TRANSPLANT REJECTION
     Route: 048
     Dates: start: 20150220, end: 20150222
  13. DRIPTANE [Suspect]
     Active Substance: OXYBUTYNIN
     Route: 048
     Dates: start: 20150218, end: 20150222
  14. AMOXICILLINE ACIDE CLAVULANIQUE SANDOZ [Suspect]
     Active Substance: AMOXICILLIN\CLAVULANATE POTASSIUM
     Dosage: 1 G/ 125 MG, THREE TIMES A DAY
     Route: 048
     Dates: start: 20150219, end: 20150224
  15. PARACETAMOL PANPHARMA [Suspect]
     Active Substance: ACETAMINOPHEN
     Indication: PAIN
     Route: 042
     Dates: start: 20150217, end: 20150219
  16. PARACETAMOL PANPHARMA [Suspect]
     Active Substance: ACETAMINOPHEN
     Indication: PAIN
     Route: 042
     Dates: start: 20150220, end: 20150221
  17. CELLCEPT [Suspect]
     Active Substance: MYCOPHENOLATE MOFETIL\MYCOPHENOLATE MOFETIL HYDROCHLORIDE
     Indication: PROPHYLAXIS AGAINST TRANSPLANT REJECTION
     Route: 048
     Dates: start: 20150216
  18. KARDEGIC [Concomitant]
     Active Substance: ASPIRIN LYSINE
  19. GLUCOR [Concomitant]
     Active Substance: ACARBOSE
  20. TAHOR [Concomitant]
     Active Substance: ATORVASTATIN CALCIUM

REACTIONS (25)
  - Cardiogenic shock [Fatal]
  - Atrial fibrillation [None]
  - Anuria [None]
  - Hepatocellular injury [None]
  - Liver disorder [None]
  - Agranulocytosis [None]
  - Complications of transplanted kidney [None]
  - Acidosis [None]
  - Cor pulmonale [None]
  - Ischaemia [None]
  - Gastrointestinal ischaemia [None]
  - Conduction disorder [None]
  - Pulmonary oedema [None]
  - Renal ischaemia [None]
  - Spleen disorder [None]
  - Multi-organ failure [None]
  - Septic shock [None]
  - Gastric perforation [None]
  - Prothrombin time prolonged [None]
  - Peritonitis [None]
  - Gastrointestinal necrosis [None]
  - Hypoglycaemia [None]
  - Tachycardia [None]
  - Cardiac output decreased [None]
  - Cardiomyopathy [None]
